FAERS Safety Report 5793406-X (Version None)
Quarter: 2008Q2

REPORT INFORMATION
  Report Type: 
  Country: None (occurrence: None)
  Receive Date: 20080627
  Receipt Date: 20080624
  Transmission Date: 20081010
  Serious: Yes (Disabling, Other)
  Sender: FDA-Public Use
  Company Number: NZ-ASTRAZENECA-2008AC01612

PATIENT
  Age: 79 Year
  Sex: Female

DRUGS (3)
  1. BUPIVACAINE [Suspect]
     Indication: LOCAL ANAESTHESIA
     Route: 047
  2. LIDOCAINE [Suspect]
     Indication: LOCAL ANAESTHESIA
     Route: 047
  3. PREDNISONE [Concomitant]

REACTIONS (1)
  - RETINAL ARTERY OCCLUSION [None]
